FAERS Safety Report 8455118-3 (Version None)
Quarter: 2012Q2

REPORT INFORMATION
  Report Type: 
  Country: None (occurrence: None)
  Receive Date: 20120614
  Receipt Date: 20120614
  Transmission Date: 20120825
  Serious: No
  Sender: FDA-Public Use
  Company Number: None

PATIENT
  Sex: Female

DRUGS (2)
  1. LEVOFLOXACIN [Suspect]
     Indication: NEPHROLITHIASIS
     Dosage: 500 MG, ONCE A DAY, PO
     Route: 048
  2. PRACASTATIN [Concomitant]

REACTIONS (1)
  - PAIN IN EXTREMITY [None]
